FAERS Safety Report 16696402 (Version 1)
Quarter: 2019Q3

REPORT INFORMATION
  Report Type: Spontaneous
  Country: JP (occurrence: JP)
  Receive Date: 20190813
  Receipt Date: 20190813
  Transmission Date: 20191004
  Serious: Yes (Other)
  Sender: FDA-Public Use
  Company Number: JP-MYLANLABS-2019M1073885

PATIENT
  Age: 33 Year
  Sex: Female

DRUGS (3)
  1. PREDNISOLONE. [Suspect]
     Active Substance: PREDNISOLONE
     Indication: ULCERATIVE KERATITIS
     Dosage: 4 DOSAGE FORM, TID
     Route: 048
     Dates: start: 20190717
  2. CRAVIT [Suspect]
     Active Substance: LEVOFLOXACIN
     Indication: ULCERATIVE KERATITIS
     Dosage: 6 DROP, QD
     Route: 047
     Dates: start: 20190717
  3. HYALONSAN [Suspect]
     Active Substance: HYALURONATE SODIUM
     Indication: ULCERATIVE KERATITIS
     Dosage: 6 DROP, QD
     Route: 047
     Dates: start: 20190717

REACTIONS (1)
  - Treatment failure [Unknown]

NARRATIVE: CASE EVENT DATE: 20190719
